FAERS Safety Report 11990182 (Version 3)
Quarter: 2016Q2

REPORT INFORMATION
  Report Type: Spontaneous
  Country: FR (occurrence: FR)
  Receive Date: 20160202
  Receipt Date: 20160413
  Transmission Date: 20160815
  Serious: Yes (Hospitalization, Other)
  Sender: FDA-Public Use
  Company Number: FR-BAXTER-2016BAX003609

PATIENT
  Age: 68 Year
  Sex: Male

DRUGS (21)
  1. MABTHERA [Suspect]
     Active Substance: RITUXIMAB
     Indication: B-CELL LYMPHOMA STAGE III
     Dosage: FIRST COURSE OF R-CHOP
     Route: 042
     Dates: start: 20151210
  2. MABTHERA [Suspect]
     Active Substance: RITUXIMAB
     Dosage: FIFTH COURSE OF R-CHOP
     Route: 042
     Dates: start: 20160318
  3. DOXORUBICINE ACCORD [Suspect]
     Active Substance: DOXORUBICIN
     Dosage: THIRD COURSE OF R-CHOP
     Route: 042
     Dates: start: 20160205
  4. PREDNISONE. [Concomitant]
     Active Substance: PREDNISONE
     Dosage: FIFTH COURSE OF R-CHOP
     Route: 048
     Dates: start: 20160318
  5. DOXORUBICINE ACCORD [Suspect]
     Active Substance: DOXORUBICIN
     Dosage: SECOND COURSE OF R-CHOP
     Route: 042
     Dates: start: 20160115
  6. PREDNISONE. [Concomitant]
     Active Substance: PREDNISONE
     Dosage: THIRD COURSE OF R-CHOP
     Route: 048
     Dates: start: 20160205
  7. ENDOXAN 1000 MG, POUDRE POUR SOLUTION INJECTABLE [Suspect]
     Active Substance: CYCLOPHOSPHAMIDE
     Indication: B-CELL LYMPHOMA STAGE III
     Dosage: FIRST COURSE OF R-CHOP
     Route: 042
     Dates: start: 20151210
  8. VINCRISTINE HOSPIRA [Suspect]
     Active Substance: VINCRISTINE
     Dosage: FIFTH COURSE OF R-CHOP
     Route: 042
     Dates: start: 20160318
  9. DOXORUBICINE ACCORD [Suspect]
     Active Substance: DOXORUBICIN
     Dosage: FOURTH COURSE OF R-CHOP
     Route: 042
     Dates: start: 20160226
  10. VINCRISTINE HOSPIRA [Suspect]
     Active Substance: VINCRISTINE
     Dosage: SECOND COURSE OF R-CHOP
     Route: 042
     Dates: start: 20160115
  11. VINCRISTINE HOSPIRA [Suspect]
     Active Substance: VINCRISTINE
     Dosage: FOURTH COURSE OF R-CHOP
     Route: 042
     Dates: start: 20160226
  12. DOXORUBICINE ACCORD [Suspect]
     Active Substance: DOXORUBICIN
     Indication: B-CELL LYMPHOMA STAGE III
     Dosage: FIRST COURSE OF R-CHOP
     Route: 042
     Dates: start: 20151210
  13. PREDNISONE. [Concomitant]
     Active Substance: PREDNISONE
     Dosage: SECOND COURSE OF R-CHOP
     Route: 048
     Dates: start: 20160115
  14. PREDNISONE. [Concomitant]
     Active Substance: PREDNISONE
     Dosage: FOURTH COURSE OF R-CHOP
     Route: 048
     Dates: start: 20160226
  15. VINCRISTINE HOSPIRA [Suspect]
     Active Substance: VINCRISTINE
     Dosage: THIRD COURSE OF R-CHOP
     Route: 042
     Dates: start: 20160205
  16. MABTHERA [Suspect]
     Active Substance: RITUXIMAB
     Dosage: THIRD COURSE OF R-CHOP
     Route: 042
     Dates: start: 20160205
  17. MABTHERA [Suspect]
     Active Substance: RITUXIMAB
     Dosage: FOURTH COURSE OF R-CHOP
     Route: 042
     Dates: start: 20160226
  18. MABTHERA [Suspect]
     Active Substance: RITUXIMAB
     Dosage: SECOND COURSE OF R-CHOP
     Route: 042
     Dates: start: 20160115
  19. DOXORUBICINE ACCORD [Suspect]
     Active Substance: DOXORUBICIN
     Dosage: FIFTH COURSE OF R-CHOP
     Route: 042
     Dates: start: 20160318
  20. VINCRISTINE HOSPIRA [Suspect]
     Active Substance: VINCRISTINE
     Indication: B-CELL LYMPHOMA STAGE III
     Dosage: FIRST COURSE OF R-CHOP
     Route: 042
     Dates: start: 20151210
  21. PREDNISONE. [Concomitant]
     Active Substance: PREDNISONE
     Indication: B-CELL LYMPHOMA STAGE III
     Dosage: FIRST COURSE OF R-CHOP
     Route: 048
     Dates: start: 20151210

REACTIONS (4)
  - Interstitial lung disease [Unknown]
  - Hypoxia [Unknown]
  - Hypercalcaemia [Unknown]
  - Alveolitis allergic [Not Recovered/Not Resolved]

NARRATIVE: CASE EVENT DATE: 20151228
